FAERS Safety Report 19451648 (Version 1)
Quarter: 2021Q2

REPORT INFORMATION
  Report Type: Spontaneous
  Country: US (occurrence: US)
  Receive Date: 20210623
  Receipt Date: 20210623
  Transmission Date: 20210717
  Serious: No
  Sender: FDA-Public Use
  Company Number: US-ACCORD-189981

PATIENT
  Age: 66 Year
  Sex: Female

DRUGS (1)
  1. CLONAZEPAM ACCORD [Suspect]
     Active Substance: CLONAZEPAM
     Indication: ANXIETY
     Dosage: BLUE PILL

REACTIONS (4)
  - Dizziness [Unknown]
  - Product substitution issue [Unknown]
  - Abdominal discomfort [Unknown]
  - Constipation [Unknown]
